FAERS Safety Report 16521465 (Version 2)
Quarter: 2019Q3

REPORT INFORMATION
  Report Type: Report from Study
  Country: CR (occurrence: CR)
  Receive Date: 20190702
  Receipt Date: 20190713
  Transmission Date: 20191004
  Serious: Yes (Hospitalization, Other)
  Sender: FDA-Public Use
  Company Number: PHHY2017CR131287

PATIENT
  Sex: Female
  Weight: 59 kg

DRUGS (4)
  1. SANDOSTATIN LAR DEPOT [Suspect]
     Active Substance: OCTREOTIDE ACETATE
     Dosage: 30 MG, UNK
     Route: 065
  2. SANDOSTATIN LAR DEPOT [Suspect]
     Active Substance: OCTREOTIDE ACETATE
     Indication: ACROMEGALY
     Dosage: 20 MG, QMO
     Route: 065
     Dates: end: 20180201
  3. MILK OF MAGNESIA [Concomitant]
     Active Substance: MAGNESIUM HYDROXIDE
     Indication: PRODUCT USED FOR UNKNOWN INDICATION
     Dosage: UNK
     Route: 065
  4. SANDOSTATIN LAR DEPOT [Suspect]
     Active Substance: OCTREOTIDE ACETATE
     Dosage: 20 MG, UNK
     Route: 065
     Dates: end: 20180903

REACTIONS (30)
  - Pituitary tumour [Not Recovered/Not Resolved]
  - Muscle tightness [Unknown]
  - Discomfort [Unknown]
  - Sleep disorder [Recovering/Resolving]
  - Cholelithiasis [Unknown]
  - Gastritis [Recovered/Resolved]
  - Drug tolerance [Unknown]
  - Feeling abnormal [Unknown]
  - Constipation [Unknown]
  - Pain in extremity [Unknown]
  - Pain [Unknown]
  - Neoplasm progression [Unknown]
  - Haemorrhoids [Unknown]
  - Gait disturbance [Recovered/Resolved]
  - Hypoaesthesia [Recovering/Resolving]
  - Swelling [Recovered/Resolved]
  - Peripheral swelling [Unknown]
  - Dysphagia [Unknown]
  - Flatulence [Unknown]
  - Oropharyngeal pain [Unknown]
  - Inflammation [Unknown]
  - Scar [Unknown]
  - Choking sensation [Unknown]
  - Limb discomfort [Unknown]
  - Mood altered [Recovered/Resolved]
  - Hepatic cyst [Unknown]
  - Anxiety [Unknown]
  - Weight decreased [Unknown]
  - Sinusitis [Unknown]
  - Nasopharyngitis [Unknown]
